FAERS Safety Report 16461007 (Version 1)
Quarter: 2019Q2

REPORT INFORMATION
  Report Type: Report from Study
  Country: GT (occurrence: GT)
  Receive Date: 20190620
  Receipt Date: 20190620
  Transmission Date: 20190711
  Serious: Yes (Other)
  Sender: FDA-Public Use
  Company Number: PHHY2019GT141934

PATIENT
  Age: 62 Year
  Sex: Female

DRUGS (2)
  1. EXFORGE HCT [Suspect]
     Active Substance: AMLODIPINE BESYLATE\HYDROCHLOROTHIAZIDE\VALSARTAN
     Indication: PRODUCT USED FOR UNKNOWN INDICATION
     Dosage: (AMLODIPINE 10 MG, HYDROCHLOROTHIAZIDE 25 MG, VALSARTAN 320 MG)
     Route: 065
  2. CO-DIOVAN [Suspect]
     Active Substance: HYDROCHLOROTHIAZIDE\VALSARTAN
     Indication: PRODUCT USED FOR UNKNOWN INDICATION
     Dosage: (HYDROCHLOROTHIAZIDE 12.5 MG, VALSARTAN 160 MG)
     Route: 065

REACTIONS (8)
  - Angina unstable [Unknown]
  - Incorrect dose administered [Unknown]
  - Drug intolerance [Unknown]
  - Hypoxia [Unknown]
  - Inflammation [Unknown]
  - Headache [Unknown]
  - Poor peripheral circulation [Unknown]
  - Arthritis [Unknown]
